FAERS Safety Report 5531378-3 (Version None)
Quarter: 2007Q4

REPORT INFORMATION
  Report Type: 
  Country: None (occurrence: None)
  Receive Date: 20071128
  Receipt Date: 20071116
  Transmission Date: 20080405
  Serious: Yes (Other)
  Sender: FDA-Public Use
  Company Number: GXKR2007GB09869

PATIENT
  Sex: Female
  Weight: 2.2 kg

DRUGS (4)
  1. FLUOXETINE [Suspect]
     Dosage: TRANSPLACENTAL
     Route: 064
  2. FORMOTEROL FUMARATE [Suspect]
     Dosage: TRANSPLACENTAL
     Route: 064
     Dates: start: 20051001
  3. SALUTAMOL (NGX) (SALBUTAMOL) UNKNOWN [Suspect]
     Dosage: TRANSPLACENTAL
     Route: 064
  4. BUDESONIDE [Suspect]
     Dosage: TRANSPLACENTAL
     Route: 064
     Dates: start: 20051001

REACTIONS (2)
  - DRUG EXPOSURE DURING PREGNANCY [None]
  - SEPSIS NEONATAL [None]
